FAERS Safety Report 7104639-4 (Version None)
Quarter: 2010Q4

REPORT INFORMATION
  Report Type: 
  Country: None (occurrence: None)
  Receive Date: 20101116
  Receipt Date: 20101101
  Transmission Date: 20110411
  Serious: Yes (Disabling, Other)
  Sender: FDA-Public Use
  Company Number: DE-JNJFOC-20101104494

PATIENT
  Sex: Female
  Weight: 75 kg

DRUGS (2)
  1. PALEXIA RETARD [Suspect]
     Indication: BACK PAIN
     Route: 048
     Dates: start: 20101008, end: 20101012
  2. BUPRENORPHINE [Concomitant]
     Route: 062

REACTIONS (9)
  - ANXIETY [None]
  - CARDIOVASCULAR DISORDER [None]
  - DEPRESSED MOOD [None]
  - DIZZINESS [None]
  - HYPERHIDROSIS [None]
  - HYPERTENSION [None]
  - IMPAIRED WORK ABILITY [None]
  - NERVOUS SYSTEM DISORDER [None]
  - TACHYCARDIA [None]
